FAERS Safety Report 18786235 (Version 1)
Quarter: 2021Q1

REPORT INFORMATION
  Report Type: Spontaneous
  Country: CZ (occurrence: CZ)
  Receive Date: 20210125
  Receipt Date: 20210125
  Transmission Date: 20210419
  Serious: Yes (Other)
  Sender: FDA-Public Use
  Company Number: CZ-TAKEDA-2021TUS003268

PATIENT
  Sex: Male

DRUGS (1)
  1. EMICIZUMAB. [Concomitant]
     Active Substance: EMICIZUMAB
     Dosage: UNK
     Route: 065

REACTIONS (3)
  - Anti factor VIII antibody increased [Unknown]
  - Haemorrhage [Unknown]
  - Drug ineffective [Unknown]
